FAERS Safety Report 5374031-1 (Version None)
Quarter: 2007Q2

REPORT INFORMATION
  Report Type: 
  Country: None (occurrence: None)
  Receive Date: 20070628
  Receipt Date: 20070618
  Transmission Date: 20071010
  Serious: Yes (Other)
  Sender: FDA-Public Use
  Company Number: US-GENENTECH-243608

PATIENT
  Sex: Female
  Weight: 74.83 kg

DRUGS (14)
  1. RITUXAN [Suspect]
     Indication: AUTOIMMUNE HEPATITIS
     Dosage: 500 MG, 1/MONTH
     Route: 042
     Dates: start: 20060801, end: 20061101
  2. RITUXAN [Suspect]
     Dosage: 1000 MG, UNK
     Route: 042
     Dates: start: 20070518
  3. PREDNISONE TAB [Concomitant]
     Indication: DRUG USE FOR UNKNOWN INDICATION
  4. ALTACE [Concomitant]
     Indication: DRUG USE FOR UNKNOWN INDICATION
  5. AMILORIDE HYDROCHLORIDE [Concomitant]
     Indication: DRUG USE FOR UNKNOWN INDICATION
  6. NEXIUM [Concomitant]
     Indication: DRUG USE FOR UNKNOWN INDICATION
  7. ASPIRIN [Concomitant]
     Indication: DRUG USE FOR UNKNOWN INDICATION
  8. VITAMIN B-12 [Concomitant]
     Indication: DRUG USE FOR UNKNOWN INDICATION
  9. CALCIUM CHLORIDE [Concomitant]
     Indication: DRUG USE FOR UNKNOWN INDICATION
  10. VITAMIN D [Concomitant]
     Indication: DRUG USE FOR UNKNOWN INDICATION
  11. ZINC [Concomitant]
     Indication: DRUG USE FOR UNKNOWN INDICATION
  12. FISH OIL [Concomitant]
     Indication: DRUG USE FOR UNKNOWN INDICATION
  13. SELENIUM SULFIDE [Concomitant]
     Indication: DRUG USE FOR UNKNOWN INDICATION
  14. VITAMIN E [Concomitant]
     Indication: DRUG USE FOR UNKNOWN INDICATION

REACTIONS (1)
  - CHOLECYSTECTOMY [None]
